FAERS Safety Report 5193964-2 (Version None)
Quarter: 2006Q4

REPORT INFORMATION
  Report Type: 
  Country: None (occurrence: None)
  Receive Date: 20061222
  Receipt Date: 20061109
  Transmission Date: 20070319
  Serious: Yes (Death, Hospitalization, Other)
  Sender: FDA-Public Use
  Company Number: 2006065277

PATIENT
  Age: 68 Year
  Sex: Female
  Weight: 117.9352 kg

DRUGS (2)
  1. CELEBREX [Suspect]
     Dosage: ORAL
     Route: 048
  2. BEXTRA [Suspect]
     Dosage: 20 MG, ORAL
     Route: 048

REACTIONS (2)
  - CHEST PAIN [None]
  - MYOCARDIAL INFARCTION [None]
